FAERS Safety Report 15479841 (Version 4)
Quarter: 2019Q3

REPORT INFORMATION
  Report Type: Spontaneous
  Country: US (occurrence: US)
  Receive Date: 20181009
  Receipt Date: 20190807
  Transmission Date: 20191004
  Serious: Yes (Hospitalization, Other)
  Sender: FDA-Public Use
  Company Number: US-ACTELION-A-US2018-179637

PATIENT
  Sex: Female
  Weight: 58.96 kg

DRUGS (2)
  1. VELETRI [Suspect]
     Active Substance: EPOPROSTENOL
     Indication: PULMONARY HYPERTENSION
     Dosage: 16.1 NG/KG, PER MIN
     Route: 042
  2. VELETRI [Suspect]
     Active Substance: EPOPROSTENOL
     Dosage: UNK
     Route: 042

REACTIONS (9)
  - Emergency care [Unknown]
  - Myalgia [Recovering/Resolving]
  - Nausea [Recovering/Resolving]
  - Gastrointestinal disorder [Recovering/Resolving]
  - Abdominal pain [Unknown]
  - Muscle spasms [Recovering/Resolving]
  - Dyspepsia [Recovering/Resolving]
  - Cholecystectomy [Unknown]
  - Vomiting [Recovering/Resolving]
